FAERS Safety Report 9163635 (Version 1)
Quarter: 2013Q1

REPORT INFORMATION
  Report Type: Spontaneous
  Country: BR (occurrence: BR)
  Receive Date: 20130314
  Receipt Date: 20130314
  Transmission Date: 20140127
  Serious: Yes (Other)
  Sender: FDA-Public Use
  Company Number: PHHY2013BR024731

PATIENT
  Age: 34 Year
  Sex: Male
  Weight: 142 kg

DRUGS (2)
  1. RITALIN LA [Suspect]
     Indication: ATTENTION DEFICIT/HYPERACTIVITY DISORDER
     Dosage: 1 CAPSULE A DAY
     Route: 048
  2. ALOPURINOL [Concomitant]
     Indication: GOUT
     Dosage: 2 TABLETS AT NIGHT
     Route: 048

REACTIONS (1)
  - Pulpitis dental [Recovering/Resolving]
